FAERS Safety Report 24038854 (Version 2)
Quarter: 2024Q3

REPORT INFORMATION
  Report Type: Spontaneous
  Country: FR (occurrence: FR)
  Receive Date: 20240702
  Receipt Date: 20240918
  Transmission Date: 20241017
  Serious: Yes (Other)
  Sender: BAUSCH AND LOMB
  Company Number: None

PATIENT
  Age: 50 Year
  Sex: Female
  Weight: 60 kg

DRUGS (5)
  1. DEXAMETHASONE [Suspect]
     Active Substance: DEXAMETHASONE
     Indication: Hysteroscopy
     Route: 042
     Dates: start: 20240124, end: 20240124
  2. SUFENTA [Suspect]
     Active Substance: SUFENTANIL CITRATE
     Indication: Hysteroscopy
     Route: 042
     Dates: start: 20240124, end: 20240124
  3. TRACRIUM [Suspect]
     Active Substance: ATRACURIUM BESYLATE
     Indication: Hysteroscopy
     Route: 042
     Dates: start: 20240124, end: 20240124
  4. PROPOFOL [Suspect]
     Active Substance: PROPOFOL
     Indication: Hysteroscopy
     Route: 042
     Dates: start: 20240124, end: 20240124
  5. KETAMINE [Suspect]
     Active Substance: KETAMINE
     Indication: Hysteroscopy
     Route: 042
     Dates: start: 20240124, end: 20240124

REACTIONS (1)
  - Anaphylactic shock [Recovered/Resolved]

NARRATIVE: CASE EVENT DATE: 20240124
